FAERS Safety Report 24536884 (Version 1)
Quarter: 2024Q4

REPORT INFORMATION
  Report Type: Spontaneous
  Country: US (occurrence: US)
  Receive Date: 20241022
  Receipt Date: 20241022
  Transmission Date: 20250115
  Serious: No
  Sender: SANOFI AVENTIS
  Company Number: US-SANOFI-02112755

PATIENT
  Age: 31 Year
  Sex: Female

DRUGS (2)
  1. DUPIXENT [Suspect]
     Active Substance: DUPILUMAB
     Indication: Eczema
     Dosage: 300 MG, QOW
     Route: 058
  2. DUPIXENT [Suspect]
     Active Substance: DUPILUMAB
     Indication: Dermatitis atopic

REACTIONS (12)
  - Rash erythematous [Unknown]
  - Dry skin [Unknown]
  - Fatigue [Unknown]
  - Lacrimation increased [Recovered/Resolved]
  - Pruritus [Unknown]
  - Insomnia [Recovered/Resolved]
  - Dermatitis atopic [Unknown]
  - Erythema of eyelid [Unknown]
  - Eyelid skin dryness [Unknown]
  - Eye pruritus [Recovered/Resolved]
  - Injection site swelling [Unknown]
  - Lack of injection site rotation [Unknown]

NARRATIVE: CASE EVENT DATE: 20241001
